APPROVED DRUG PRODUCT: BICALUTAMIDE
Active Ingredient: BICALUTAMIDE
Strength: 50MG
Dosage Form/Route: TABLET;ORAL
Application: A078917 | Product #001 | TE Code: AB
Applicant: ACCORD HEALTHCARE INC
Approved: Jul 6, 2009 | RLD: No | RS: No | Type: RX